FAERS Safety Report 13142535 (Version 1)
Quarter: 2017Q1

REPORT INFORMATION
  Report Type: Report from Study
  Country: IT (occurrence: IT)
  Receive Date: 20170123
  Receipt Date: 20170123
  Transmission Date: 20170428
  Serious: Yes (Other)
  Sender: FDA-Public Use
  Company Number: IT-GILEAD-2017-0254533

PATIENT

DRUGS (1)
  1. ELVITEGRAVIR/EMTRICITABINE/TENOFOVIR DF/COBICISTAT [Suspect]
     Active Substance: COBICISTAT\ELVITEGRAVIR\EMTRICITABINE\TENOFOVIR
     Indication: HIV INFECTION
     Route: 065

REACTIONS (2)
  - Osteopenia [Unknown]
  - Osteoporosis [Unknown]
